FAERS Safety Report 17745651 (Version 1)
Quarter: 2020Q2

REPORT INFORMATION
  Report Type: Spontaneous
  Country: CA (occurrence: CA)
  Receive Date: 20200505
  Receipt Date: 20200505
  Transmission Date: 20200714
  Serious: Yes (Other)
  Sender: FDA-Public Use
  Company Number: CA-TEVA-2020-CA-1230848

PATIENT
  Age: 70 Year
  Sex: Male

DRUGS (8)
  1. AMLODIPINE BESILATE [Suspect]
     Active Substance: AMLODIPINE BESYLATE
     Indication: PRODUCT USED FOR UNKNOWN INDICATION
     Route: 065
  2. ASA [Concomitant]
     Active Substance: ASPIRIN
  3. IRON [Concomitant]
     Active Substance: IRON
  4. CARVEDILOL. [Concomitant]
     Active Substance: CARVEDILOL
  5. TAMSULOSIN [Concomitant]
     Active Substance: TAMSULOSIN
  6. PREDNISONE. [Concomitant]
     Active Substance: PREDNISONE
  7. CHLORTHALIDONE. [Concomitant]
     Active Substance: CHLORTHALIDONE
  8. ROSUVASTATIN. [Concomitant]
     Active Substance: ROSUVASTATIN

REACTIONS (6)
  - Diabetes mellitus [Unknown]
  - Myocardial infarction [Unknown]
  - Haematochezia [Unknown]
  - Frequent bowel movements [Unknown]
  - Asthenia [Unknown]
  - Fatigue [Unknown]
